FAERS Safety Report 15297470 (Version 11)
Quarter: 2022Q3

REPORT INFORMATION
  Report Type: Spontaneous
  Country: DE (occurrence: DE)
  Receive Date: 20180820
  Receipt Date: 20220923
  Transmission Date: 20221027
  Serious: Yes (Life-Threatening, Hospitalization, Other)
  Sender: FDA-Public Use
  Company Number: PHBS2004DE13507

PATIENT
  Age: 16 Year
  Sex: Female

DRUGS (6)
  1. DICLOFENAC [Suspect]
     Active Substance: DICLOFENAC
     Indication: Pain
     Dosage: 75 MG, BID (TWO TIMES A DAY)
     Route: 048
  2. GENTAMICIN SULFATE [Suspect]
     Active Substance: GENTAMICIN SULFATE
     Indication: Antibiotic therapy
     Dosage: 320 MG, QD
     Route: 042
  3. CLINDAMYCIN [Suspect]
     Active Substance: CLINDAMYCIN
     Indication: Antibiotic prophylaxis
     Dosage: 900 MG, QD (300 MG TID 3 SEPARATED DOSES)
     Route: 048
  4. CLINDAMYCIN [Suspect]
     Active Substance: CLINDAMYCIN
     Indication: Antibiotic therapy
  5. PIPERACILLIN [Suspect]
     Active Substance: PIPERACILLIN
     Indication: Antibiotic therapy
     Dosage: 12 G, QD(4 G, TID 3 SEPARATED DOSES)
     Route: 042
  6. TAZOBACTAM [Suspect]
     Active Substance: TAZOBACTAM
     Indication: Antibiotic therapy
     Dosage: 0.5 G, TID 3 SEPARATED DOSES
     Route: 042

REACTIONS (2)
  - Large intestine perforation [Recovered/Resolved]
  - Peritonitis [Recovered/Resolved]

NARRATIVE: CASE EVENT DATE: 20030619
